FAERS Safety Report 17847504 (Version 4)
Quarter: 2021Q2

REPORT INFORMATION
  Report Type: Spontaneous
  Country: US (occurrence: US)
  Receive Date: 20200601
  Receipt Date: 20210412
  Transmission Date: 20210717
  Serious: Yes (Life-Threatening, Hospitalization, Other)
  Sender: FDA-Public Use
  Company Number: US-ASTRAZENECA-2020SE69677

PATIENT
  Age: 28885 Day
  Sex: Female

DRUGS (4)
  1. BRILINTA [Suspect]
     Active Substance: TICAGRELOR
     Indication: STENT PLACEMENT
     Dosage: 2.0MG UNKNOWN
     Route: 048
     Dates: start: 20161102
  2. BRILINTA [Suspect]
     Active Substance: TICAGRELOR
     Indication: STENT PLACEMENT
     Dosage: 90.0MG UNKNOWN
     Route: 048
     Dates: start: 2017
  3. BRILINTA [Suspect]
     Active Substance: TICAGRELOR
     Indication: STENT PLACEMENT
     Dosage: 60.0MG UNKNOWN
     Route: 048
     Dates: start: 2018, end: 20200430
  4. BABY ASPIRIN [Concomitant]
     Active Substance: ASPIRIN

REACTIONS (9)
  - Malaise [Unknown]
  - Head discomfort [Not Recovered/Not Resolved]
  - Pain [Not Recovered/Not Resolved]
  - Loss of consciousness [Not Recovered/Not Resolved]
  - Gait inability [Not Recovered/Not Resolved]
  - Memory impairment [Unknown]
  - Headache [Not Recovered/Not Resolved]
  - Fall [Unknown]
  - Subdural haemorrhage [Not Recovered/Not Resolved]

NARRATIVE: CASE EVENT DATE: 20200430
